FAERS Safety Report 24527243 (Version 2)
Quarter: 2024Q4

REPORT INFORMATION
  Report Type: Report from Study
  Country: US (occurrence: US)
  Receive Date: 20241021
  Receipt Date: 20241224
  Transmission Date: 20250115
  Serious: Yes (Hospitalization)
  Sender: ROCHE
  Company Number: US-ROCHE-3516550

PATIENT
  Age: 41 Year
  Sex: Female

DRUGS (1)
  1. COTELLIC [Suspect]
     Active Substance: COBIMETINIB
     Indication: Langerhans^ cell histiocytosis
     Dosage: TAKE 2 TABLET(S) BY MOUTH ONCE A DAY FOR 21 DAYS THEN STOP FOR 7 DAYS
     Route: 048

REACTIONS (1)
  - Viral infection [Unknown]
